FAERS Safety Report 4721371-2 (Version None)
Quarter: 2005Q3

REPORT INFORMATION
  Report Type: 
  Country: None (occurrence: None)
  Receive Date: 20050721
  Receipt Date: 20040726
  Transmission Date: 20060218
  Serious: No
  Sender: FDA-Public Use
  Company Number: US-BRISTOL-MYERS SQUIBB COMPANY-12651022

PATIENT
  Age: 69 Year
  Sex: Female

DRUGS (2)
  1. COUMADIN [Suspect]
     Indication: ANTICOAGULANT THERAPY
     Dosage: 12.5 MG ALTERNATING WITH 12.25  QOD
     Route: 048
  2. LEVOTHROID [Interacting]
     Indication: HYPOTHYROIDISM
     Route: 048

REACTIONS (4)
  - BLOOD DISORDER [None]
  - DRUG INEFFECTIVE [None]
  - DRUG INTERACTION POTENTIATION [None]
  - PROTHROMBIN TIME PROLONGED [None]
